FAERS Safety Report 6940570-2 (Version None)
Quarter: 2010Q3

REPORT INFORMATION
  Report Type: 
  Country: None (occurrence: None)
  Receive Date: 20100825
  Receipt Date: 20100814
  Transmission Date: 20110219
  Serious: Yes (Hospitalization)
  Sender: FDA-Public Use
  Company Number: SG-BAYER-201036486GPV

PATIENT
  Age: 65 Year
  Sex: Male

DRUGS (1)
  1. CIPROFLOXACIN [Suspect]
     Indication: UPPER RESPIRATORY TRACT INFECTION

REACTIONS (7)
  - ACUTE GENERALISED EXANTHEMATOUS PUSTULOSIS [None]
  - ERYTHEMA [None]
  - PYREXIA [None]
  - RASH MACULAR [None]
  - RASH PAPULAR [None]
  - RASH PUSTULAR [None]
  - SKIN EXFOLIATION [None]
